FAERS Safety Report 5888930-5 (Version None)
Quarter: 2008Q3

REPORT INFORMATION
  Report Type: 
  Country: None (occurrence: None)
  Receive Date: 20080916
  Receipt Date: 20080916
  Transmission Date: 20090109
  Serious: Yes (Other)
  Sender: FDA-Public Use
  Company Number: None

PATIENT
  Age: 49 Year
  Sex: Female

DRUGS (2)
  1. PROZAC [Suspect]
     Indication: DEPRESSION
     Dosage: 20MG
  2. PROZAC [Suspect]
     Indication: PREMENSTRUAL SYNDROME
     Dosage: 20MG

REACTIONS (1)
  - DRUG INEFFECTIVE [None]
